FAERS Safety Report 10230667 (Version 3)
Quarter: 2014Q2

REPORT INFORMATION
  Report Type: Spontaneous
  Country: DE (occurrence: JP)
  Receive Date: 20140611
  Receipt Date: 20140618
  Transmission Date: 20141212
  Serious: Yes (Hospitalization)
  Sender: FDA-Public Use
  Company Number: JP-FRI-1000067305

PATIENT
  Age: 92 Year
  Sex: Female
  Weight: 40 kg

DRUGS (6)
  1. MEMANTINE [Suspect]
     Indication: DEMENTIA ALZHEIMER^S TYPE
     Dosage: 5 MG
     Route: 048
     Dates: start: 20140318, end: 20140331
  2. MEMANTINE [Suspect]
     Dosage: 10 MG
     Route: 048
     Dates: start: 20140401, end: 20140407
  3. MEMANTINE [Suspect]
     Indication: DEMENTIA ALZHEIMER^S TYPE
     Dosage: 15 MG
     Route: 048
     Dates: start: 20140408, end: 20140428
  4. AMLODIPINE [Concomitant]
     Dosage: 5 MG
     Dates: end: 20140428
  5. PRAVASTATIN NA [Concomitant]
     Dosage: 10 MG
     Dates: end: 20140428
  6. MAGNESIUM OXIDE [Concomitant]
     Dosage: 0.5 G
     Dates: end: 20140428

REACTIONS (2)
  - Somnolence [Recovered/Resolved]
  - Altered state of consciousness [Recovered/Resolved]
